FAERS Safety Report 19707270 (Version 1)
Quarter: 2021Q3

REPORT INFORMATION
  Report Type: Spontaneous
  Country: CN (occurrence: CN)
  Receive Date: 20210817
  Receipt Date: 20210817
  Transmission Date: 20211014
  Serious: Yes (Other)
  Sender: FDA-Public Use
  Company Number: CN-BAXTER-2021BAX024747

PATIENT
  Age: 64 Year
  Sex: Male
  Weight: 50 kg

DRUGS (3)
  1. DOXORUBICIN HYDROCHLORIDE LIPOSOME [Suspect]
     Active Substance: DOXORUBICIN HYDROCHLORIDE
     Indication: THYMOMA
     Dosage: CAP REGIMEN
     Route: 041
     Dates: start: 20210719, end: 20210719
  2. ENDOXAN [Suspect]
     Active Substance: CYCLOPHOSPHAMIDE
     Indication: THYMOMA
     Dosage: CAP REGIMEN
     Route: 041
     Dates: start: 20210719, end: 20210719
  3. NUOXIN [Suspect]
     Active Substance: CISPLATIN
     Indication: THYMOMA
     Dosage: CAP REGIMEN
     Route: 041
     Dates: start: 20210719, end: 20210720

REACTIONS (4)
  - Gastrointestinal disorder [Unknown]
  - Asthenia [Recovering/Resolving]
  - Nausea [Recovering/Resolving]
  - Vomiting [Recovering/Resolving]

NARRATIVE: CASE EVENT DATE: 20210721
